FAERS Safety Report 22293039 (Version 2)
Quarter: 2023Q2

REPORT INFORMATION
  Report Type: Spontaneous
  Country: US (occurrence: US)
  Receive Date: 20230508
  Receipt Date: 20230603
  Transmission Date: 20230721
  Serious: No
  Sender: FDA-Public Use
  Company Number: US-GSK-US2023AMR063339

PATIENT
  Age: 51 Year
  Sex: Female

DRUGS (1)
  1. BENLYSTA [Suspect]
     Active Substance: BELIMUMAB
     Indication: Product used for unknown indication
     Dosage: 200 MG/ML
     Route: 058
     Dates: start: 20230420

REACTIONS (4)
  - Injection site bruising [Not Recovered/Not Resolved]
  - Exposure via skin contact [Unknown]
  - Accidental exposure to product [Unknown]
  - Product complaint [Unknown]

NARRATIVE: CASE EVENT DATE: 20230427
